FAERS Safety Report 20217048 (Version 1)
Quarter: 2021Q4

REPORT INFORMATION
  Report Type: Spontaneous
  Country: EG (occurrence: EG)
  Receive Date: 20211222
  Receipt Date: 20211222
  Transmission Date: 20220303
  Serious: Yes (Disabling, Other)
  Sender: FDA-Public Use
  Company Number: EG-SERVIER-S21013835

PATIENT
  Sex: Female
  Weight: 80 kg

DRUGS (3)
  1. LONSURF [Suspect]
     Active Substance: TIPIRACIL HYDROCHLORIDE\TRIFLURIDINE
     Indication: Colorectal cancer metastatic
     Dosage: 60 MG, DAILY
     Route: 048
     Dates: start: 202105, end: 20211102
  2. INDERAL [Concomitant]
     Active Substance: PROPRANOLOL HYDROCHLORIDE
     Indication: Product used for unknown indication
     Dosage: 40 UNK
     Route: 065
     Dates: start: 2017
  3. ELIQUIS [Concomitant]
     Active Substance: APIXABAN
     Indication: Product used for unknown indication
     Dosage: 2.5 UNK
     Route: 065
     Dates: start: 2015

REACTIONS (1)
  - Ascites [Not Recovered/Not Resolved]

NARRATIVE: CASE EVENT DATE: 20210101
